FAERS Safety Report 26157607 (Version 1)
Quarter: 2025Q4

REPORT INFORMATION
  Report Type: Report from Study
  Country: AR (occurrence: AR)
  Receive Date: 20251215
  Receipt Date: 20251215
  Transmission Date: 20260118
  Serious: Yes (Life-Threatening, Other)
  Sender: NOVARTIS
  Company Number: AR-002147023-NVSC2025AR065921

PATIENT
  Age: 54 Year
  Sex: Female

DRUGS (7)
  1. KISQALI [Suspect]
     Active Substance: RIBOCICLIB SUCCINATE
     Indication: Breast cancer metastatic
     Dosage: 3 DOSAGE FORM (OF 200 MG (600 MG), QD
     Route: 048
     Dates: start: 20231223
  2. KISQALI [Suspect]
     Active Substance: RIBOCICLIB SUCCINATE
     Dosage: UNK
     Route: 065
     Dates: start: 20241223
  3. KISQALI [Suspect]
     Active Substance: RIBOCICLIB SUCCINATE
     Dosage: 600 MG, QD
     Route: 048
  4. ZOMETA [Suspect]
     Active Substance: ZOLEDRONIC ACID
     Indication: Breast cancer metastatic
     Dosage: 4 MG, QMO, AMPOULE
     Route: 042
     Dates: start: 20241223
  5. FEMARA [Suspect]
     Active Substance: LETROZOLE
     Indication: Breast cancer metastatic
     Dosage: 1 DOSAGE FORM (OF 2.5 MG), QD
     Route: 048
     Dates: start: 20241223
  6. TRAMADOL [Concomitant]
     Active Substance: TRAMADOL
     Indication: Pain
     Dosage: UNK
     Route: 065
  7. ACETAMINOPHEN [Concomitant]
     Active Substance: ACETAMINOPHEN
     Indication: Pain
     Dosage: UNK
     Route: 065

REACTIONS (20)
  - Blood cholesterol increased [Unknown]
  - Blindness [Not Recovered/Not Resolved]
  - Pneumonia [Recovered/Resolved]
  - Pneumonia [Recovered/Resolved]
  - Diabetes mellitus [Unknown]
  - Cough [Unknown]
  - Speech disorder [Unknown]
  - Insomnia [Unknown]
  - Anaemia [Unknown]
  - Catarrh [Unknown]
  - Laboratory test abnormal [Unknown]
  - Pruritus [Recovering/Resolving]
  - Lipoma [Not Recovered/Not Resolved]
  - Mobility decreased [Not Recovered/Not Resolved]
  - Hot flush [Unknown]
  - Pain in extremity [Unknown]
  - Gait disturbance [Unknown]
  - Hypersensitivity [Recovering/Resolving]
  - Drug intolerance [Unknown]
  - Inappropriate schedule of product administration [Unknown]

NARRATIVE: CASE EVENT DATE: 20241201
